FAERS Safety Report 8830361 (Version 2)
Quarter: 2012Q4

REPORT INFORMATION
  Report Type: 
  Country: IT (occurrence: IT)
  Receive Date: 20121009
  Receipt Date: 20121018
  Transmission Date: 20130627
  Serious: Yes (Life-Threatening)
  Sender: FDA-Public Use
  Company Number: IT-009507513-1210ITA002888

PATIENT
  Age: 42 Year
  Sex: Female
  Weight: 40 kg

DRUGS (3)
  1. DESLORATADINE [Suspect]
     Indication: SUICIDE ATTEMPT
     Dosage: 50 mg, Once
     Route: 048
     Dates: start: 20120928, end: 20120928
  2. ACETAMINOPHEN [Suspect]
     Indication: SUICIDE ATTEMPT
     Dosage: 12000 mg, Once
     Route: 048
     Dates: start: 20120928, end: 20120928
  3. SYNFLEX [Suspect]
     Indication: SUICIDE ATTEMPT
     Dosage: 5500 mg, Once
     Route: 048
     Dates: start: 20120928, end: 20120928

REACTIONS (3)
  - Suicide attempt [Recovering/Resolving]
  - Hepatitis [Recovering/Resolving]
  - Overdose [Recovering/Resolving]
